FAERS Safety Report 25396416 (Version 3)
Quarter: 2025Q2

REPORT INFORMATION
  Report Type: Spontaneous
  Country: US (occurrence: US)
  Receive Date: 20250604
  Receipt Date: 20250625
  Transmission Date: 20250716
  Serious: Yes (Other)
  Sender: BAYER HEALTHCARE PHARMACEUTICALS INC.
  Company Number: US-BAYER-2025A073635

PATIENT
  Age: 62 Year
  Sex: Female

DRUGS (1)
  1. MIRENA [Suspect]
     Active Substance: LEVONORGESTREL
     Indication: Intrauterine contraception
     Dosage: 20?G/DAY
     Route: 015
     Dates: start: 202304

REACTIONS (8)
  - Breast cancer [None]
  - Fatigue [None]
  - Asthenia [None]
  - Vomiting [None]
  - Nausea [None]
  - Feeding disorder [None]
  - Abdominal discomfort [None]
  - Full blood count decreased [None]

NARRATIVE: CASE EVENT DATE: 20250501
